FAERS Safety Report 5346770-X (Version None)
Quarter: 2007Q2

REPORT INFORMATION
  Report Type: 
  Country: None (occurrence: None)
  Receive Date: 20070604
  Receipt Date: 20070528
  Transmission Date: 20071010
  Serious: Yes (Other)
  Sender: FDA-Public Use
  Company Number: 2007SP007423

PATIENT
  Age: 58 Year
  Sex: Male
  Weight: 52 kg

DRUGS (10)
  1. TEMODAL [Suspect]
     Indication: GLIOBLASTOMA MULTIFORME
     Dosage: 100 MG; QD; PO
     Route: 048
     Dates: start: 20070314, end: 20070424
  2. DIFLUCAN [Suspect]
     Indication: ANTIFUNGAL PROPHYLAXIS
     Dosage: 100 MG, PO
     Route: 048
     Dates: start: 20070314, end: 20070322
  3. BACTRIM [Suspect]
     Indication: ANTIFUNGAL PROPHYLAXIS
     Dosage: 2 DF; PO
     Route: 048
     Dates: start: 20070314, end: 20070322
  4. DEPAKENE [Suspect]
     Indication: CONVULSION PROPHYLAXIS
     Dosage: 400 MG; PO
     Route: 048
     Dates: start: 20070202, end: 20070326
  5. GASTER-D (NO PREF. NAME) [Suspect]
     Indication: PROPHYLAXIS
     Dosage: 20 MG; PO
     Route: 048
     Dates: start: 20070224, end: 20070326
  6. GASTER-D (NO PREF. NAME) [Suspect]
     Indication: STRESS ULCER
     Dosage: 20 MG; PO
     Route: 048
     Dates: start: 20070224, end: 20070326
  7. RINDERON [Concomitant]
  8. CONIEL [Concomitant]
  9. MAINTATE [Concomitant]
  10. NASEA OD [Concomitant]

REACTIONS (3)
  - ALANINE AMINOTRANSFERASE INCREASED [None]
  - ASPARTATE AMINOTRANSFERASE INCREASED [None]
  - HEPATIC FUNCTION ABNORMAL [None]
